FAERS Safety Report 10833278 (Version 2)
Quarter: 2015Q1

REPORT INFORMATION
  Report Type: Spontaneous
  Country: US (occurrence: US)
  Receive Date: 20150219
  Receipt Date: 20150224
  Transmission Date: 20150721
  Serious: No
  Sender: FDA-Public Use
  Company Number: US-ELI_LILLY_AND_COMPANY-US201502003779

PATIENT

DRUGS (2)
  1. HUMALOG [Suspect]
     Active Substance: INSULIN LISPRO
     Indication: DIABETES MELLITUS
     Dosage: 20 U, UNKNOWN
     Route: 065
     Dates: start: 2014
  2. LEVEMIR [Concomitant]
     Active Substance: INSULIN DETEMIR
     Route: 065

REACTIONS (5)
  - Back disorder [Unknown]
  - Insomnia [Unknown]
  - Swelling [Unknown]
  - Nerve injury [Unknown]
  - Feeding disorder [Unknown]
